FAERS Safety Report 4313784-8 (Version None)
Quarter: 2004Q1

REPORT INFORMATION
  Report Type: 
  Country: None (occurrence: None)
  Receive Date: 20040305
  Receipt Date: 20040220
  Transmission Date: 20041129
  Serious: Yes (Death, Hospitalization)
  Sender: FDA-Public Use
  Company Number: 200401357

PATIENT
  Sex: Male

DRUGS (1)
  1. BOTOX [Suspect]
     Indication: TORTICOLLIS
     Dates: start: 19950101

REACTIONS (10)
  - AMYOTROPHIC LATERAL SCLEROSIS [None]
  - COMA [None]
  - DIAPHRAGMATIC DISORDER [None]
  - DYSPEPSIA [None]
  - DYSPHAGIA [None]
  - HOARSENESS [None]
  - MUSCULAR WEAKNESS [None]
  - RESPIRATORY DISORDER [None]
  - RESPIRATORY FAILURE [None]
  - WEIGHT DECREASED [None]
